FAERS Safety Report 8811354 (Version 1)
Quarter: 2012Q4

REPORT INFORMATION
  Report Type: 
  Country: US (occurrence: US)
  Receive Date: 20120927
  Receipt Date: 20120927
  Transmission Date: 20130627
  Serious: Yes (Hospitalization, Other)
  Sender: FDA-Public Use
  Company Number: US-BAYER-2012-097844

PATIENT
  Age: 19 Year
  Sex: Female

DRUGS (1)
  1. LEVONORGESTREL [Suspect]
     Route: 015

REACTIONS (3)
  - Pelvic inflammatory disease [Recovered/Resolved]
  - Pelvic inflammatory disease [Recovered/Resolved]
  - Vaginitis bacterial [Recovered/Resolved]
